FAERS Safety Report 6495096-X (Version None)
Quarter: 2009Q4

REPORT INFORMATION
  Report Type: 
  Country: None (occurrence: None)
  Receive Date: 20091214
  Receipt Date: 20090512
  Transmission Date: 20100525
  Serious: Yes (Other)
  Sender: FDA-Public Use
  Company Number: US-BRISTOL-MYERS SQUIBB COMPANY-14607121

PATIENT
  Age: 12 Year
  Sex: Male

DRUGS (3)
  1. ABILIFY [Suspect]
     Indication: ATTENTION DEFICIT/HYPERACTIVITY DISORDER
     Dosage: HAS BEEN TAKING FOR 1 YR
     Route: 048
     Dates: start: 20070815
  2. ABILIFY [Suspect]
     Indication: OBSESSIVE-COMPULSIVE DISORDER
     Dosage: HAS BEEN TAKING FOR 1 YR
     Route: 048
     Dates: start: 20070815
  3. VYVANSE [Suspect]

REACTIONS (1)
  - ANGIOEDEMA [None]
